FAERS Safety Report 5148435-6 (Version None)
Quarter: 2006Q4

REPORT INFORMATION
  Report Type: 
  Country: None (occurrence: None)
  Receive Date: 20061110
  Receipt Date: 20061103
  Transmission Date: 20070319
  Serious: Yes (Hospitalization)
  Sender: FDA-Public Use
  Company Number: FR-MERCK-0611FRA00014

PATIENT
  Age: 79 Year
  Sex: Female

DRUGS (6)
  1. NOROXIN [Suspect]
     Indication: URINARY TRACT INFECTION
     Route: 048
     Dates: start: 20061031, end: 20061103
  2. FUROSEMIDE [Concomitant]
     Indication: HYPERTENSION
     Route: 048
  3. POTASSIUM CHLORIDE [Concomitant]
     Route: 048
  4. PHENOBARBITAL TAB [Concomitant]
     Indication: EPILEPSY
     Route: 048
  5. PHENYTOIN SODIUM [Concomitant]
     Indication: EPILEPSY
     Route: 048
  6. CLORAZEPATE DIPOTASSIUM [Concomitant]
     Indication: EPILEPSY
     Route: 048

REACTIONS (3)
  - COMA [None]
  - CONVULSION [None]
  - POSTICTAL STATE [None]
